FAERS Safety Report 7586610 (Version 11)
Quarter: 2013Q1

REPORT INFORMATION
  Report Type: Spontaneous
  Country: US (occurrence: US)
  Receive Date: 20100915
  Receipt Date: 20130121
  Transmission Date: 20140127
  Serious: Yes (Hospitalization, Other)
  Sender: FDA-Public Use
  Company Number: US-BIOGENIDEC-2010BI031347

PATIENT
  Age: 55 None
  Sex: Female
  Weight: 74 kg

DRUGS (4)
  1. AVONEX [Suspect]
     Indication: MULTIPLE SCLEROSIS
     Route: 030
  2. AVONEX [Suspect]
     Indication: MULTIPLE SCLEROSIS
     Route: 030
     Dates: start: 20040213
  3. AVONEX [Suspect]
     Indication: MULTIPLE SCLEROSIS
     Route: 030
     Dates: start: 20050213, end: 2012
  4. AVONEX [Suspect]
     Indication: MULTIPLE SCLEROSIS
     Route: 030
     Dates: start: 2012

REACTIONS (16)
  - Postoperative wound infection [Recovered/Resolved]
  - Wound treatment [Recovered/Resolved]
  - Allergy to metals [Recovered/Resolved]
  - Partial seizures [Not Recovered/Not Resolved]
  - Conversion disorder [Unknown]
  - Panic reaction [Unknown]
  - Multiple sclerosis relapse [Recovered/Resolved]
  - Abasia [Not Recovered/Not Resolved]
  - Dysgraphia [Not Recovered/Not Resolved]
  - Coordination abnormal [Not Recovered/Not Resolved]
  - Meningioma benign [Recovered/Resolved]
  - Peroneal nerve palsy [Not Recovered/Not Resolved]
  - Procedural pain [Not Recovered/Not Resolved]
  - Erythema [Not Recovered/Not Resolved]
  - Fall [Recovered/Resolved]
  - Pruritus [Not Recovered/Not Resolved]
